FAERS Safety Report 23619299 (Version 1)
Quarter: 2024Q1

REPORT INFORMATION
  Report Type: Other
  Country: US (occurrence: None)
  Receive Date: 20240311
  Receipt Date: 20240311
  Transmission Date: 20240410
  Serious: No
  Sender: FDA-Public Use
  Company Number: US-ROCHE-3522486

PATIENT
  Age: 28 Year
  Sex: Female
  Weight: 76.272 kg

DRUGS (3)
  1. OCREVUS [Suspect]
     Active Substance: OCRELIZUMAB
     Indication: Relapsing multiple sclerosis
     Route: 042
     Dates: start: 2021
  2. AMOXICILLIN [Concomitant]
     Active Substance: AMOXICILLIN
  3. OXYBUTYNIN [Concomitant]
     Active Substance: OXYBUTYNIN\OXYBUTYNIN CHLORIDE

REACTIONS (3)
  - Bladder dysfunction [Not Recovered/Not Resolved]
  - COVID-19 [Recovered/Resolved]
  - Fall [Unknown]

NARRATIVE: CASE EVENT DATE: 20230101
